FAERS Safety Report 4827278-4 (Version None)
Quarter: 2005Q4

REPORT INFORMATION
  Report Type: 
  Country: None (occurrence: None)
  Receive Date: 20051114
  Receipt Date: 20050725
  Transmission Date: 20060501
  Serious: Yes (Hospitalization)
  Sender: FDA-Public Use
  Company Number: PHBS2005JP10886

PATIENT
  Age: 91 Year
  Sex: Female

DRUGS (7)
  1. VOLTAREN [Suspect]
     Indication: PYREXIA
     Dosage: 25 MG/DAY
     Route: 054
     Dates: start: 20050720, end: 20050720
  2. ALLOZYM [Suspect]
     Indication: HYPERURICAEMIA
     Dosage: UNK, UNK
     Route: 048
     Dates: start: 20050624
  3. RISPERDAL [Suspect]
     Indication: COPROLALIA
     Dosage: UNK, UNK
     Route: 048
     Dates: start: 20050618, end: 20050626
  4. DIOVAN [Suspect]
     Indication: HYPERTENSION
     Dosage: 80 MG/DAY
     Route: 048
     Dates: start: 20050613, end: 20050726
  5. ARICEPT [Suspect]
     Indication: COGNITIVE DISORDER
     Route: 048
     Dates: start: 20050618, end: 20050626
  6. LASIX [Suspect]
  7. LORCAM [Suspect]

REACTIONS (9)
  - C-REACTIVE PROTEIN INCREASED [None]
  - LIP HAEMORRHAGE [None]
  - MUCOSAL EROSION [None]
  - PHARYNGOLARYNGEAL PAIN [None]
  - PROTEIN URINE PRESENT [None]
  - PYREXIA [None]
  - RASH GENERALISED [None]
  - STEVENS-JOHNSON SYNDROME [None]
  - SWELLING FACE [None]
